FAERS Safety Report 16607746 (Version 1)
Quarter: 2019Q3

REPORT INFORMATION
  Report Type: Spontaneous
  Country: DE (occurrence: DE)
  Receive Date: 20190722
  Receipt Date: 20190722
  Transmission Date: 20191004
  Serious: Yes (Death, Hospitalization)
  Sender: FDA-Public Use
  Company Number: DE-TEVA-2019-DE-1079839

PATIENT
  Age: 81 Year
  Sex: Male
  Weight: 63 kg

DRUGS (7)
  1. PARACODEIN [Concomitant]
     Dosage: 30 DROPS B.B., DROPS
     Route: 048
  2. COTRIM FORTE [Concomitant]
     Active Substance: SULFAMETHOXAZOLE\TRIMETHOPRIM
     Dosage: 800|160 MG, 1-0-1, TABLETS
     Route: 048
  3. TILIDIN COMP [Concomitant]
     Active Substance: NALOXONE HYDROCHLORIDE\TILIDINE HYDROCHLORIDE
     Dosage: 50|4 MG, B.W., TABLETS
     Route: 048
  4. FUROSEMID [Suspect]
     Active Substance: FUROSEMIDE
     Dosage: 40 MG, 1-0-0, TABLETS
     Route: 048
  5. PANTOZOL [Concomitant]
     Active Substance: PANTOPRAZOLE SODIUM
     Dosage: 40 MG, 1-0-0, TABLETS
     Route: 048
  6. DECORTIN [Concomitant]
     Active Substance: PREDNISONE
     Dosage: 10 MG, 1-0-0, TABLETS
     Route: 048
  7. ACICLOVIR [Concomitant]
     Active Substance: ACYCLOVIR
     Dosage: 400 MG, 1-0-1, TABLETS
     Route: 048

REACTIONS (4)
  - Dehydration [Fatal]
  - Cough [Fatal]
  - Pain [Fatal]
  - Pyrexia [Fatal]
